FAERS Safety Report 8016744-9 (Version None)
Quarter: 2012Q1

REPORT INFORMATION
  Report Type: 
  Country: None (occurrence: None)
  Receive Date: 20120102
  Receipt Date: 20111227
  Transmission Date: 20120608
  Serious: Yes (Hospitalization, Other)
  Sender: FDA-Public Use
  Company Number: US-BIOGENIDEC-2011BI048805

PATIENT
  Sex: Female

DRUGS (1)
  1. AVONEX [Suspect]
     Indication: MULTIPLE SCLEROSIS
     Route: 030
     Dates: start: 20031021

REACTIONS (4)
  - MULTIPLE SCLEROSIS RELAPSE [None]
  - COLOSTOMY [None]
  - BLOOD URINE PRESENT [None]
  - DECUBITUS ULCER [None]
